FAERS Safety Report 25920645 (Version 2)
Quarter: 2025Q4

REPORT INFORMATION
  Report Type: Spontaneous
  Country: US (occurrence: US)
  Receive Date: 20251014
  Receipt Date: 20251022
  Transmission Date: 20260118
  Serious: Yes (Other)
  Sender: BAUSCH AND LOMB
  Company Number: US-BAUSCH-BH-2025-018576

PATIENT
  Age: 64 Year
  Sex: Female

DRUGS (2)
  1. DEXAMETHASONE [Suspect]
     Active Substance: DEXAMETHASONE
     Indication: Autoimmune haemolytic anaemia
     Route: 065
  2. POSACONAZOLE [Concomitant]
     Active Substance: POSACONAZOLE
     Indication: Prophylaxis

REACTIONS (8)
  - Skin mass [Recovered/Resolved]
  - Synovitis [Recovered/Resolved]
  - Myositis [Recovered/Resolved]
  - Joint effusion [Recovered/Resolved]
  - Escherichia infection [Recovered/Resolved]
  - Escherichia bacteraemia [Recovered/Resolved]
  - Pathogen resistance [Recovered/Resolved]
  - Abscess limb [Recovered/Resolved]
